FAERS Safety Report 23878434 (Version 7)
Quarter: 2024Q4

REPORT INFORMATION
  Report Type: Spontaneous
  Country: CA (occurrence: CA)
  Receive Date: 20240521
  Receipt Date: 20241216
  Transmission Date: 20250114
  Serious: Yes (Death, Other)
  Sender: PFIZER
  Company Number: CA-PFIZER INC-202400072945

PATIENT
  Age: 51 Year
  Sex: Female

DRUGS (6)
  1. RUXIENCE [Suspect]
     Active Substance: RITUXIMAB-PVVR
     Indication: Sarcoidosis
     Dosage: 1000 MG (1GX2, 2 WEEKS APART)
     Route: 042
  2. RUXIENCE [Suspect]
     Active Substance: RITUXIMAB-PVVR
     Indication: Psoriatic arthropathy
     Dosage: 1000 MG (DAY 1 AND DAY 15, UNKNOWN MANUFACTURER) (1GX2, 2 WEEKS APART)
     Route: 042
     Dates: start: 20240126, end: 20240126
  3. RUXIENCE [Suspect]
     Active Substance: RITUXIMAB-PVVR
     Indication: Spondyloarthropathy
     Dosage: 1000 MG (DAY 1 AND DAY 15, UNKNOWN MANUFACTURER) (1G X2, 2 WEEKS APART) 2 DOSES
     Route: 042
     Dates: start: 202402
  4. RUXIENCE [Suspect]
     Active Substance: RITUXIMAB-PVVR
     Dosage: 1000 MG, EVERY 2 WEEK (2 DOSES)
     Route: 042
     Dates: start: 20240628
  5. ABRILADA [Concomitant]
     Active Substance: ADALIMUMAB-AFZB
     Indication: Psoriatic arthropathy
     Dosage: 1 DF
     Route: 058
  6. DEXAMETHASONE [Concomitant]
     Active Substance: DEXAMETHASONE
     Dosage: 7.5 MG, DAILY
     Route: 048

REACTIONS (25)
  - Death [Fatal]
  - Quadriparesis [Unknown]
  - Trismus [Unknown]
  - Respiratory distress [Unknown]
  - Cutaneous T-cell lymphoma [Unknown]
  - Scleroderma overlap syndrome [Unknown]
  - Polychondritis [Unknown]
  - Idiopathic inflammatory myopathy [Unknown]
  - Oedema [Unknown]
  - Myalgia [Unknown]
  - Facial spasm [Not Recovered/Not Resolved]
  - Muscle spasms [Unknown]
  - Myopathy [Unknown]
  - Dizziness [Not Recovered/Not Resolved]
  - Balance disorder [Not Recovered/Not Resolved]
  - Tinnitus [Not Recovered/Not Resolved]
  - Dysphagia [Not Recovered/Not Resolved]
  - Rash [Not Recovered/Not Resolved]
  - Skin exfoliation [Unknown]
  - Sunburn [Unknown]
  - Nose deformity [Unknown]
  - Asthenia [Unknown]
  - Hypoaesthesia [Unknown]
  - Paraesthesia [Unknown]
  - Off label use [Unknown]

NARRATIVE: CASE EVENT DATE: 20240101
